FAERS Safety Report 24046356 (Version 1)
Quarter: 2024Q3

REPORT INFORMATION
  Report Type: Spontaneous
  Country: US (occurrence: US)
  Receive Date: 20240703
  Receipt Date: 20240703
  Transmission Date: 20241016
  Serious: Yes (Hospitalization)
  Sender: PERRIGO
  Company Number: US-PERRIGO-24US006195

PATIENT
  Age: 76 Year
  Sex: Male

DRUGS (2)
  1. LORATADINE [Suspect]
     Active Substance: LORATADINE
     Indication: Hypersensitivity
     Dosage: 10 MG, QD
     Route: 048
     Dates: start: 202405, end: 20240626
  2. LORATADINE [Suspect]
     Active Substance: LORATADINE
     Dosage: UNKNOWN, UNKNOWN
     Route: 048

REACTIONS (5)
  - Gait inability [Recovered/Resolved]
  - Hypotension [Unknown]
  - Vertigo [Unknown]
  - Vomiting [Unknown]
  - Dizziness [Unknown]

NARRATIVE: CASE EVENT DATE: 20240518
